FAERS Safety Report 22621577 (Version 16)
Quarter: 2023Q4

REPORT INFORMATION
  Report Type: Spontaneous
  Country: PL (occurrence: PL)
  Receive Date: 20230620
  Receipt Date: 20231129
  Transmission Date: 20240109
  Serious: Yes (Death, Hospitalization, Other)
  Sender: FDA-Public Use
  Company Number: PL-MYLANLABS-2023M1064452

PATIENT
  Age: 64 Year
  Sex: Female

DRUGS (33)
  1. OMEPRAZOLE [Interacting]
     Active Substance: OMEPRAZOLE
     Indication: Abdominal pain upper
     Dosage: 40 MILLIGRAM, QD
     Route: 065
  2. OMEPRAZOLE [Interacting]
     Active Substance: OMEPRAZOLE
     Indication: Abdominal pain lower
  3. OMEPRAZOLE [Suspect]
     Active Substance: OMEPRAZOLE
     Indication: Abdominal pain upper
     Dosage: 40 MILLIGRAM, QD
     Route: 065
  4. GLUCOSAMINE [Suspect]
     Active Substance: GLUCOSAMINE
     Indication: Product used for unknown indication
     Dosage: UNK
     Route: 065
  5. ESOMEPRAZOLE [Suspect]
     Active Substance: ESOMEPRAZOLE
     Indication: Product used for unknown indication
     Dosage: UNK
     Route: 065
  6. METOPROLOL [Suspect]
     Active Substance: METOPROLOL
     Indication: Osteoarthritis
     Dosage: 50 MILLIGRAM, QD
     Route: 065
  7. METOPROLOL [Suspect]
     Active Substance: METOPROLOL
     Indication: Atrial fibrillation
  8. WARFARIN [Interacting]
     Active Substance: WARFARIN
     Indication: Anticoagulant therapy
     Dosage: VARIABLE DOSES ADJUSTED TO THE INR VALUE
     Route: 065
  9. WARFARIN [Interacting]
     Active Substance: WARFARIN
     Indication: Abdominal pain upper
  10. WARFARIN [Interacting]
     Active Substance: WARFARIN
     Indication: Osteoarthritis
  11. WARFARIN [Interacting]
     Active Substance: WARFARIN
     Indication: Atrial fibrillation
  12. WARFARIN [Interacting]
     Active Substance: WARFARIN
     Indication: Coagulopathy
  13. ACETAMINOPHEN [Interacting]
     Active Substance: ACETAMINOPHEN
     Indication: Arthralgia
     Dosage: 1000 MG, BID (1000 MG, 2 X 24 H IN THE DAYTIME)
     Route: 065
  14. ACETAMINOPHEN [Interacting]
     Active Substance: ACETAMINOPHEN
     Indication: Osteoarthritis
     Dosage: COMBINATION WITH DIPHENHYDRAMINE BEFORE NIGHT
     Route: 065
  15. ACETAMINOPHEN [Interacting]
     Active Substance: ACETAMINOPHEN
     Dosage: 1000 MILLIGRAM, QOD
     Route: 065
  16. DIPHENHYDRAMINE HYDROCHLORIDE [Interacting]
     Active Substance: DIPHENHYDRAMINE HYDROCHLORIDE
     Indication: Arthralgia
     Dosage: COMBINATION WITH PARACETAMOL BEFORE NIGHT
     Route: 065
  17. DIPHENHYDRAMINE HYDROCHLORIDE [Interacting]
     Active Substance: DIPHENHYDRAMINE HYDROCHLORIDE
     Indication: Osteoarthritis
  18. PROPAFENONE HYDROCHLORIDE [Suspect]
     Active Substance: PROPAFENONE HYDROCHLORIDE
     Indication: Atrial fibrillation
     Dosage: 150 MILLIGRAM, Q2D
     Route: 065
  19. ACENOCOUMAROL [Suspect]
     Active Substance: ACENOCOUMAROL
     Indication: Product used for unknown indication
     Dosage: UNK
     Route: 065
  20. TICLOPIDINE [Suspect]
     Active Substance: TICLOPIDINE
     Indication: Product used for unknown indication
     Dosage: UNK
     Route: 065
  21. CARBAMAZEPINE [Suspect]
     Active Substance: CARBAMAZEPINE
     Indication: Product used for unknown indication
     Dosage: UNK
     Route: 065
  22. CIPROFLOXACIN [Suspect]
     Active Substance: CIPROFLOXACIN
     Indication: Product used for unknown indication
     Dosage: UNK
     Route: 065
  23. DEXAMETHASONE [Suspect]
     Active Substance: DEXAMETHASONE
     Indication: Product used for unknown indication
     Dosage: UNK
     Route: 065
  24. ETHINYL ESTRADIOL [Suspect]
     Active Substance: ETHINYL ESTRADIOL
     Indication: Product used for unknown indication
     Dosage: ORALCONTRACEPTIVESAND INHORMONEREPLACEMENTTHERAPY
     Route: 065
  25. FLUVOXAMINE [Suspect]
     Active Substance: FLUVOXAMINE
     Indication: Product used for unknown indication
     Dosage: UNK
     Route: 065
  26. ACETAMINOPHEN\DIPHENHYDRAMINE CITRATE [Interacting]
     Active Substance: ACETAMINOPHEN\DIPHENHYDRAMINE CITRATE
     Indication: Arthralgia
     Dosage: UNK (AT NIGHT)
     Route: 065
  27. ACETAMINOPHEN\DIPHENHYDRAMINE CITRATE [Interacting]
     Active Substance: ACETAMINOPHEN\DIPHENHYDRAMINE CITRATE
     Indication: Osteoarthritis
     Dosage: 1 DOSAGE FORM, QD (AT NIGHT)
     Route: 065
  28. RYTHMOL [Suspect]
     Active Substance: PROPAFENONE HYDROCHLORIDE
     Indication: Atrial fibrillation
     Dosage: 150 MILLIGRAM, BID (300 MG, QD)
     Route: 065
  29. RYTHMOL [Suspect]
     Active Substance: PROPAFENONE HYDROCHLORIDE
     Indication: Osteoarthritis
     Dosage: 150 MILLIGRAM, QOD
     Route: 065
  30. CHONDROITIN SULFATE (BOVINE) [Concomitant]
     Active Substance: CHONDROITIN SULFATE (BOVINE)
     Indication: Abdominal pain upper
     Dosage: UNK
     Route: 065
  31. CHONDROITIN SULFATE (BOVINE) [Concomitant]
     Active Substance: CHONDROITIN SULFATE (BOVINE)
     Indication: Supplementation therapy
  32. METOPROLOL [Concomitant]
     Active Substance: METOPROLOL
     Indication: Atrial fibrillation
     Dosage: 50 MILLIGRAM, BID
     Route: 065
  33. METOPROLOL [Concomitant]
     Active Substance: METOPROLOL
     Dosage: 50 MILLIGRAM, QD
     Route: 065

REACTIONS (18)
  - Subarachnoid haemorrhage [Fatal]
  - Coagulation time prolonged [Fatal]
  - Product prescribing error [Fatal]
  - Loss of consciousness [Fatal]
  - Abdominal pain [Not Recovered/Not Resolved]
  - Drug level increased [Unknown]
  - Abdominal pain lower [Unknown]
  - Medication error [Unknown]
  - Abdominal pain upper [Unknown]
  - Drug interaction [Unknown]
  - Anticoagulation drug level increased [Unknown]
  - International normalised ratio abnormal [Unknown]
  - Arthralgia [Unknown]
  - Product prescribing issue [Unknown]
  - Product use in unapproved indication [Unknown]
  - Drug ineffective [Unknown]
  - Off label use [Unknown]
  - Labelled drug-drug interaction medication error [Unknown]
